FAERS Safety Report 4627777-4 (Version None)
Quarter: 2005Q2

REPORT INFORMATION
  Report Type: 
  Country: None (occurrence: None)
  Receive Date: 20050401
  Receipt Date: 20050401
  Transmission Date: 20051028
  Serious: Yes (Life-Threatening)
  Sender: FDA-Public Use
  Company Number: None

PATIENT
  Age: 79 Year
  Sex: Male

DRUGS (1)
  1. GATIFLOXACIN [Suspect]
     Indication: RESPIRATORY TRACT INFECTION
     Dosage: 400MG QD ORAL
     Route: 047
     Dates: start: 20041229, end: 20050103

REACTIONS (3)
  - CHEST DISCOMFORT [None]
  - SWELLING FACE [None]
  - SWOLLEN TONGUE [None]
